FAERS Safety Report 15637102 (Version 4)
Quarter: 2018Q4

REPORT INFORMATION
  Report Type: Spontaneous
  Country: CN (occurrence: CN)
  Receive Date: 20181120
  Receipt Date: 20181224
  Transmission Date: 20190205
  Serious: Yes (Life-Threatening)
  Sender: FDA-Public Use
  Company Number: CN-ASTRAZENECA-2018SF51912

PATIENT
  Age: 40 Year
  Sex: Female

DRUGS (12)
  1. GLUCOSE [Concomitant]
     Active Substance: DEXTROSE
  2. DOXOFYLLINE [Concomitant]
     Active Substance: DOXOFYLLINE
  3. SODIUM CHLORIDE. [Concomitant]
     Active Substance: SODIUM CHLORIDE
  4. AMBROXOL HYDROCHLORIDE [Concomitant]
     Active Substance: AMBROXOL HYDROCHLORIDE
  5. POTASSIUM MAGNESIUM ASPARTATE [Concomitant]
     Active Substance: MAGNESIUM ASPARTATE\POTASSIUM ASPARTATE
  6. METHYLPREDNISOLONE SODIUM SUCCINATE. [Concomitant]
     Active Substance: METHYLPREDNISOLONE SODIUM SUCCINATE
  7. CEFOPERAZONE [Concomitant]
     Active Substance: CEFOPERAZONE
  8. PULMICORT RESPULES [Suspect]
     Active Substance: BUDESONIDE
     Indication: CHRONIC OBSTRUCTIVE PULMONARY DISEASE
     Route: 055
     Dates: start: 20181110, end: 20181110
  9. SULBACTAM SODIUM [Concomitant]
     Active Substance: SULBACTAM SODIUM
  10. POTASSIUM CHLORIDE. [Concomitant]
     Active Substance: POTASSIUM CHLORIDE
     Dosage: (0.75G)
  11. POTASSIUM CHLORIDE. [Concomitant]
     Active Substance: POTASSIUM CHLORIDE
     Dosage: (0.3G)
  12. FUROSEMIDE. [Concomitant]
     Active Substance: FUROSEMIDE

REACTIONS (12)
  - Acute respiratory failure [Recovered/Resolved]
  - Pleural adhesion [Recovered/Resolved]
  - Choking [Unknown]
  - Dyspnoea [Unknown]
  - Sinus tachycardia [Recovered/Resolved]
  - Cor pulmonale chronic [Recovered/Resolved]
  - Pleural thickening [Recovered/Resolved]
  - Lung disorder [Recovered/Resolved]
  - Nausea [Unknown]
  - Tremor [Unknown]
  - Circumstance or information capable of leading to medication error [Unknown]
  - Pneumonia [Recovered/Resolved]
